FAERS Safety Report 7245458-8 (Version None)
Quarter: 2011Q1

REPORT INFORMATION
  Report Type: 
  Country: None (occurrence: None)
  Receive Date: 20110126
  Receipt Date: 20110118
  Transmission Date: 20110831
  Serious: Yes (Hospitalization, Disabling, Other)
  Sender: FDA-Public Use
  Company Number: PHEH2007US02903

PATIENT
  Sex: Female

DRUGS (58)
  1. FAMOTIDINE [Concomitant]
     Dosage: 20 MG, QW
  2. HYDROCORTISONE SODIUM SUCCINATE [Concomitant]
     Dosage: 100 MG, PRN
  3. PROCHLORPERAZINE [Concomitant]
     Dosage: 10 MG, PRN
  4. ZOMETA [Suspect]
     Indication: BONE NEOPLASM MALIGNANT
     Dosage: UNK
     Dates: start: 20060101, end: 20060417
  5. MULTI-VITAMINS [Concomitant]
  6. TRICOR [Concomitant]
  7. LOVAZA [Concomitant]
  8. AVASTIN [Concomitant]
  9. XELODA [Concomitant]
  10. LIPITOR [Concomitant]
     Dosage: 10 MG, QD
  11. DEXAMETHASONE [Concomitant]
     Dosage: 20 MG, QW
  12. HYDROXYZINE [Concomitant]
     Dosage: 25 MG, QW
     Route: 048
  13. PROTONIX [Concomitant]
     Dosage: 40 MG, QD
  14. CELEBREX [Concomitant]
     Dosage: 200 MG, BID
  15. TRICHLORMETHIAZIDE [Concomitant]
     Dosage: 48 MG, QD
  16. METFORMIN [Concomitant]
  17. NEXIUM [Concomitant]
     Dosage: UNK
     Route: 048
  18. LOMOTIL [Concomitant]
     Dosage: UNK
  19. VANCOMYCIN [Concomitant]
     Dosage: 1 G, QD
  20. LEVOFLOXACIN [Concomitant]
     Dosage: 500 MG, ONCE/SINGLE
  21. SENNA-S (DOCUSATE SODIUM/SENNOSIDES) [Concomitant]
     Dosage: UNK
     Route: 048
  22. AROMASIN [Concomitant]
     Indication: BREAST CANCER
  23. PRILOSEC [Concomitant]
     Dosage: UNK
  24. LANTUS [Concomitant]
  25. FISH OIL [Concomitant]
  26. ASPIRIN [Concomitant]
     Dosage: 81 MG, QD
  27. ZOMETA [Suspect]
     Indication: BONE DENSITY DECREASED
  28. CITALOPRAM [Concomitant]
     Dosage: 40 MG, QD
  29. CRESTOR [Concomitant]
  30. ALEVE [Concomitant]
  31. HYDROMORPHONE [Concomitant]
     Dosage: 2 MG, UNK
     Route: 048
  32. MORPHINE [Concomitant]
     Dosage: 4 MG, UNK
  33. DAPTOMYCIN [Concomitant]
     Dosage: 440 MG, UNK
  34. FEMARA [Concomitant]
     Dosage: 2.5 MG, QD
  35. XANAX [Concomitant]
     Dosage: 0.5 MG, TID
  36. OXYCODONE [Concomitant]
  37. METOPROLOL SUCCINATE [Concomitant]
     Dosage: UNK
  38. MECLIZINE [Concomitant]
     Dosage: UNK
  39. TAMOXIFEN [Concomitant]
     Indication: BREAST CANCER
     Dosage: 20 MG, QD
     Dates: start: 20030605
  40. CHANTIX [Concomitant]
     Indication: SMOKING CESSATION THERAPY
     Dosage: 0.5 MG, BID
  41. METRONIDAZOLE [Concomitant]
     Dosage: 500 MG, UNK
     Route: 048
  42. CELEXA [Concomitant]
     Dosage: 40 MG, QD
  43. GRAPE SEED [Concomitant]
  44. TYLENOL-500 [Concomitant]
     Dosage: UNK
  45. LIDODERM [Concomitant]
  46. NEURONTIN [Concomitant]
  47. TAXOL [Concomitant]
  48. DIPHENHYDRAMINE [Concomitant]
     Dosage: 50 MG, QW
  49. EPINEPHRINE [Concomitant]
     Dosage: 1 MG, PRN
  50. INSULIN LISPRO [Concomitant]
     Dosage: UNK
  51. DESIPRAMINE [Concomitant]
     Dosage: 10 MG, PRN
  52. ZOLADEX [Concomitant]
     Dosage: 10.8 MG, UNK
     Route: 058
  53. PERIDEX [Concomitant]
  54. FASLODEX [Concomitant]
  55. NIASPAN [Concomitant]
  56. FENTANYL [Concomitant]
     Route: 062
  57. EFFEXOR [Concomitant]
     Dosage: 37.5 MG, QD
     Route: 048
  58. DIAZEPAM [Concomitant]
     Dosage: 10 MG, UNK
     Route: 048

REACTIONS (40)
  - DIABETES MELLITUS [None]
  - PALMAR-PLANTAR ERYTHRODYSAESTHESIA SYNDROME [None]
  - GLUCOSE TOLERANCE IMPAIRED [None]
  - DECREASED INTEREST [None]
  - BONE DISORDER [None]
  - WEIGHT INCREASED [None]
  - ARTHRALGIA [None]
  - ACTINOMYCOSIS [None]
  - APHTHOUS STOMATITIS [None]
  - CELLULITIS [None]
  - PAIN [None]
  - SPINAL CLAUDICATION [None]
  - CARDIAC DISORDER [None]
  - OTITIS MEDIA ACUTE [None]
  - ACUTE SINUSITIS [None]
  - BRONCHIAL HYPERREACTIVITY [None]
  - AMNESIA [None]
  - LYMPHADENOPATHY [None]
  - TOOTH ABSCESS [None]
  - BLOOD PRESSURE INCREASED [None]
  - FALL [None]
  - PRIMARY SEQUESTRUM [None]
  - JOINT SPRAIN [None]
  - PNEUMONIA [None]
  - OSTEONECROSIS OF JAW [None]
  - GENERAL PHYSICAL HEALTH DETERIORATION [None]
  - OSTEOARTHRITIS [None]
  - GROIN ABSCESS [None]
  - DIARRHOEA [None]
  - DEPRESSION [None]
  - PHARYNGITIS [None]
  - DIZZINESS [None]
  - MUSCLE SPASMS [None]
  - EXCORIATION [None]
  - POLYNEUROPATHY [None]
  - HYPOTHYROIDISM [None]
  - ANXIETY [None]
  - METASTASES TO LIVER [None]
  - VERTEBRAL FORAMINAL STENOSIS [None]
  - METABOLIC SYNDROME [None]
